FAERS Safety Report 16697045 (Version 1)
Quarter: 2019Q3

REPORT INFORMATION
  Report Type: Spontaneous
  Country: US (occurrence: US)
  Receive Date: 20190813
  Receipt Date: 20190813
  Transmission Date: 20191004
  Serious: No
  Sender: FDA-Public Use
  Company Number: US-PFIZER INC-2019343838

PATIENT
  Age: 62 Year
  Sex: Female
  Weight: 97.52 kg

DRUGS (1)
  1. LYRICA [Suspect]
     Active Substance: PREGABALIN
     Indication: DIABETIC NEUROPATHY
     Dosage: 50 MG, 3X/DAY (50 MG TABLETS TOOK 3 TABLETS A DAY ONE IN MORNING, ONE AT NOON AND ONE AT NIGHT BY M)
     Route: 048
     Dates: start: 2019

REACTIONS (1)
  - Weight decreased [Unknown]
